FAERS Safety Report 20670700 (Version 1)
Quarter: 2022Q2

REPORT INFORMATION
  Report Type: Spontaneous
  Country: TN (occurrence: TN)
  Receive Date: 20220404
  Receipt Date: 20220404
  Transmission Date: 20220721
  Serious: Yes (Other)
  Sender: FDA-Public Use
  Company Number: TN-ANIPHARMA-2022-TN-000010

PATIENT
  Age: 49 Year
  Sex: 0

DRUGS (1)
  1. INDOMETHACIN [Suspect]
     Active Substance: INDOMETHACIN
     Indication: Product used for unknown indication

REACTIONS (1)
  - Glomerulonephritis minimal lesion [Unknown]
